FAERS Safety Report 9399402 (Version 2)
Quarter: 2013Q3

REPORT INFORMATION
  Report Type: Spontaneous
  Country: US (occurrence: US)
  Receive Date: 20130715
  Receipt Date: 20130830
  Transmission Date: 20140515
  Serious: Yes (Other)
  Sender: FDA-Public Use
  Company Number: US-PFIZER INC-2013202546

PATIENT
  Age: 41 Year
  Sex: Female

DRUGS (3)
  1. CHANTIX [Suspect]
     Dosage: STARTER PACK ONE TABLET
     Route: 048
     Dates: start: 20090922, end: 20091130
  2. CELEXA [Concomitant]
  3. AMITRIPTYLINE [Concomitant]

REACTIONS (1)
  - Loss of consciousness [Unknown]
